FAERS Safety Report 9247535 (Version 1)
Quarter: 2013Q2

REPORT INFORMATION
  Report Type: Spontaneous
  Country: SE (occurrence: SE)
  Receive Date: 20130423
  Receipt Date: 20130423
  Transmission Date: 20140414
  Serious: Yes (Other)
  Sender: FDA-Public Use
  Company Number: PHHY2013SE036097

PATIENT
  Sex: 0

DRUGS (3)
  1. GILENYA [Suspect]
     Dosage: 0.5 MG, UNK
     Route: 048
     Dates: start: 20120703
  2. ATARAX//HYDROXYZINE [Concomitant]
     Indication: PRURITUS
  3. ATARAX//HYDROXYZINE [Concomitant]
     Indication: PSORIASIS

REACTIONS (1)
  - Myalgia [Not Recovered/Not Resolved]
